FAERS Safety Report 7969071-X (Version None)
Quarter: 2011Q4

REPORT INFORMATION
  Report Type: 
  Country: None (occurrence: None)
  Receive Date: 20111209
  Receipt Date: 20111205
  Transmission Date: 20120403
  Serious: Yes (Other)
  Sender: FDA-Public Use
  Company Number: US-TEVA-312476USA

PATIENT
  Sex: Male

DRUGS (3)
  1. METFORMIN HCL [Suspect]
  2. SIMVASTATIN [Suspect]
  3. AMLODIPINE [Suspect]

REACTIONS (2)
  - PARALYSIS [None]
  - SWELLING [None]
